FAERS Safety Report 9398607 (Version 1)
Quarter: 2013Q3

REPORT INFORMATION
  Report Type: Spontaneous
  Country: US (occurrence: US)
  Receive Date: 20130712
  Receipt Date: 20130712
  Transmission Date: 20140515
  Serious: No
  Sender: FDA-Public Use
  Company Number: US-JNJFOC-20130707150

PATIENT
  Sex: Female
  Weight: 55.34 kg

DRUGS (8)
  1. SANDOZ FENTANYL TRANSDERMAL SYSTEM [Suspect]
     Indication: ARTHRALGIA
     Route: 062
  2. LEVOTHYROXINE SODIUM [Concomitant]
     Indication: THYROID DISORDER
     Route: 048
  3. SIMVASTATIN [Concomitant]
     Indication: BLOOD CHOLESTEROL INCREASED
     Route: 048
     Dates: start: 2008
  4. ZOLOFT [Concomitant]
     Indication: DEPRESSION
     Route: 048
     Dates: start: 201203
  5. ACETYLSALICYLIC ACID [Concomitant]
     Route: 048
  6. ZOLOFT [Concomitant]
     Indication: DEPRESSION
     Route: 048
     Dates: start: 201203
  7. CARVEDILOL [Concomitant]
     Indication: HYPERTENSION
     Route: 048
  8. COLACE [Concomitant]
     Indication: CONSTIPATION
     Route: 065
     Dates: start: 201302

REACTIONS (2)
  - Poor quality drug administered [Not Recovered/Not Resolved]
  - Product quality issue [Unknown]
